FAERS Safety Report 7055883-6 (Version None)
Quarter: 2010Q4

REPORT INFORMATION
  Report Type: 
  Country: None (occurrence: None)
  Receive Date: 20101021
  Receipt Date: 20101010
  Transmission Date: 20110411
  Serious: Yes (Hospitalization, Other)
  Sender: FDA-Public Use
  Company Number: DE-JNJFOC-20101002645

PATIENT
  Age: 28 Year
  Sex: Female

DRUGS (1)
  1. REMICADE [Suspect]
     Indication: COLITIS ULCERATIVE
     Route: 042

REACTIONS (13)
  - COLITIS ULCERATIVE [None]
  - HAEMATOMA INFECTION [None]
  - HERPES ZOSTER [None]
  - HYPOKALAEMIA [None]
  - IMMOBILE [None]
  - IRON DEFICIENCY ANAEMIA [None]
  - LIVER ABSCESS [None]
  - POST PROCEDURAL COMPLICATION [None]
  - RENAL ABSCESS [None]
  - RENAL FAILURE ACUTE [None]
  - SEPSIS [None]
  - SPLENIC ABSCESS [None]
  - SPLENIC HAEMATOMA [None]
